FAERS Safety Report 13949149 (Version 15)
Quarter: 2019Q1

REPORT INFORMATION
  Report Type: Report from Study
  Country: CA (occurrence: CA)
  Receive Date: 20170908
  Receipt Date: 20190204
  Transmission Date: 20190417
  Serious: Yes (Hospitalization)
  Sender: FDA-Public Use
  Company Number: CA-GLAXOSMITHKLINE-CA2017GSK138098

PATIENT
  Sex: Male

DRUGS (8)
  1. PREDNISONE. [Interacting]
     Active Substance: PREDNISONE
     Indication: DYSPNOEA
     Dosage: 50 MG, UNK
  2. MEPOLIZUMAB [Interacting]
     Active Substance: MEPOLIZUMAB
     Dosage: 100 MG, Z (MONTHLY)
     Route: 042
  3. MEPOLIZUMAB [Interacting]
     Active Substance: MEPOLIZUMAB
     Dosage: 100 MG, Z (MONTHLY)
     Route: 042
  4. PREDNISONE. [Interacting]
     Active Substance: PREDNISONE
     Indication: ASTHMA
  5. PREDNISONE. [Interacting]
     Active Substance: PREDNISONE
     Indication: CHRONIC OBSTRUCTIVE PULMONARY DISEASE
  6. MEPOLIZUMAB [Interacting]
     Active Substance: MEPOLIZUMAB
     Dosage: 100 MG, Z (MONTHLY)
     Route: 042
  7. MEPOLIZUMAB [Interacting]
     Active Substance: MEPOLIZUMAB
     Dosage: 100 MG, Z (MONTHLY)
     Route: 042
  8. MEPOLIZUMAB [Suspect]
     Active Substance: MEPOLIZUMAB
     Indication: ASTHMA
     Dosage: 100 MG, Z (MONTHLY)
     Route: 042

REACTIONS (11)
  - Dyspnoea [Not Recovered/Not Resolved]
  - Hypertension [Recovering/Resolving]
  - Agitation [Unknown]
  - Asthma [Unknown]
  - Blood pressure increased [Recovering/Resolving]
  - Drug interaction [Unknown]
  - Drug ineffective [Unknown]
  - Chronic obstructive pulmonary disease [Recovering/Resolving]
  - Insomnia [Unknown]
  - Speech disorder [Recovered/Resolved]
  - Cough [Unknown]
